FAERS Safety Report 9553563 (Version 1)
Quarter: 2013Q3

REPORT INFORMATION
  Report Type: Spontaneous
  Country: US (occurrence: US)
  Receive Date: 20130925
  Receipt Date: 20130925
  Transmission Date: 20140515
  Serious: No
  Sender: FDA-Public Use
  Company Number: US-009507513-1309USA011487

PATIENT
  Sex: 0

DRUGS (1)
  1. VICTRELIS [Suspect]
     Dosage: 12 DF, UNK
     Route: 048
     Dates: start: 201307

REACTIONS (3)
  - Poor quality drug administered [Unknown]
  - Product physical issue [Unknown]
  - No adverse event [Unknown]
